FAERS Safety Report 4563244-4 (Version None)
Quarter: 2005Q1

REPORT INFORMATION
  Report Type: 
  Country: None (occurrence: None)
  Receive Date: 20050128
  Receipt Date: 20050119
  Transmission Date: 20050727
  Serious: Yes (Hospitalization)
  Sender: FDA-Public Use
  Company Number: GB-ABBOTT-05P-167-0287304-00

PATIENT
  Sex: Male
  Weight: 71 kg

DRUGS (5)
  1. SEVOFLURANE [Suspect]
     Indication: ANAESTHESIA
     Dosage: NOT REPORTED
     Route: 055
     Dates: start: 20050113, end: 20050113
  2. IBUPROFEN SR [Concomitant]
     Indication: PREMEDICATION
     Route: 048
     Dates: start: 20050113, end: 20050113
  3. LIGNOCAINE JELLY [Concomitant]
     Indication: POSTOPERATIVE ANALGESIA
     Route: 061
     Dates: start: 20050113, end: 20050113
  4. ACETAMINOPHEN W/ CODEINE [Concomitant]
     Indication: POSTOPERATIVE ANALGESIA
     Dosage: 30/500
     Route: 048
     Dates: start: 20050113
  5. FENTANYL [Concomitant]
     Indication: ANALGESIC EFFECT
     Route: 042
     Dates: start: 20050113, end: 20050113

REACTIONS (3)
  - ANAESTHETIC COMPLICATION [None]
  - HAEMATOMA [None]
  - WOUND HAEMORRHAGE [None]
